FAERS Safety Report 6558254-1 (Version None)
Quarter: 2010Q1

REPORT INFORMATION
  Report Type: 
  Country: None (occurrence: None)
  Receive Date: 20100128
  Receipt Date: 20100128
  Transmission Date: 20100710
  Serious: No
  Sender: FDA-Public Use
  Company Number: None

PATIENT
  Sex: Male
  Weight: 79.3795 kg

DRUGS (1)
  1. CIPROFLOXACIN HCL [Suspect]
     Indication: BIOPSY PROSTATE
     Dosage: ONE PILL MORNING AND EVENING
     Dates: start: 20100111

REACTIONS (6)
  - APPARENT DEATH [None]
  - DIARRHOEA [None]
  - HEADACHE [None]
  - HYPERHIDROSIS [None]
  - MALAISE [None]
  - NAUSEA [None]
